FAERS Safety Report 17850378 (Version 3)
Quarter: 2020Q2

REPORT INFORMATION
  Report Type: Spontaneous
  Country: US (occurrence: US)
  Receive Date: 20200602
  Receipt Date: 20200603
  Transmission Date: 20200714
  Serious: Yes (Other)
  Sender: FDA-Public Use
  Company Number: US-PFIZER INC-2020214553

PATIENT
  Age: 56 Year
  Sex: Female
  Weight: 109 kg

DRUGS (1)
  1. XELJANZ [Suspect]
     Active Substance: TOFACITINIB CITRATE
     Indication: RHEUMATOID ARTHRITIS
     Dosage: 5 MG, 2X/DAY
     Route: 048
     Dates: end: 202001

REACTIONS (3)
  - Skin discolouration [Unknown]
  - Thrombosis [Unknown]
  - Body height decreased [Unknown]

NARRATIVE: CASE EVENT DATE: 20191125
